FAERS Safety Report 9153544 (Version 2)
Quarter: 2013Q4

REPORT INFORMATION
  Report Type: Spontaneous
  Country: GB (occurrence: None)
  Receive Date: 20130204
  Receipt Date: 20131007
  Transmission Date: 20140711
  Serious: Yes (Other)
  Sender: FDA-Public Use
  Company Number: AUR-APL-2013-01064

PATIENT
  Sex: Female

DRUGS (6)
  1. METOPROLOL (METOPROLOL) [Suspect]
     Indication: HYPERTENSION
     Route: 048
  2. METROPROLOL (METOPROLOL) [Suspect]
     Indication: BLOOD PRESSURE
     Route: 042
  3. CYCLIZINE (CYCLIZINE) [Concomitant]
  4. DEXAMETHASONE (DEXAMETHASONE) [Concomitant]
  5. DIAMORPHINE (DIAMORPHINE) [Concomitant]
  6. TINZAPARIN (TINZAPARIN) [Concomitant]

REACTIONS (2)
  - Neoplasm malignant [None]
  - Malignant neoplasm progression [None]
